FAERS Safety Report 22046146 (Version 1)
Quarter: 2023Q1

REPORT INFORMATION
  Report Type: Spontaneous
  Country: US (occurrence: US)
  Receive Date: 20230228
  Receipt Date: 20230228
  Transmission Date: 20230418
  Serious: No
  Sender: FDA-Public Use
  Company Number: US-ALLERGAN-2211697US

PATIENT
  Sex: Female

DRUGS (2)
  1. ESTRADIOL [Suspect]
     Active Substance: ESTRADIOL
     Indication: Menopausal symptoms
     Dosage: UNK
     Dates: start: 20220321
  2. ESTRADIOL [Suspect]
     Active Substance: ESTRADIOL
     Indication: Atrophic vulvovaginitis

REACTIONS (8)
  - Malaise [Recovering/Resolving]
  - Frequent bowel movements [Recovering/Resolving]
  - Fluid intake reduced [Recovering/Resolving]
  - Decreased appetite [Recovering/Resolving]
  - Bedridden [Recovering/Resolving]
  - Abdominal discomfort [Unknown]
  - Vomiting [Recovering/Resolving]
  - Headache [Recovering/Resolving]

NARRATIVE: CASE EVENT DATE: 20220321
